FAERS Safety Report 10982137 (Version 2)
Quarter: 2015Q2

REPORT INFORMATION
  Report Type: Spontaneous
  Country: DE (occurrence: DE)
  Receive Date: 20150403
  Receipt Date: 20150420
  Transmission Date: 20150821
  Serious: Yes (Hospitalization, Disabling)
  Sender: FDA-Public Use
  Company Number: DE-009507513-1503DEU014007

PATIENT
  Age: 58 Year
  Sex: Male
  Weight: 70 kg

DRUGS (1)
  1. INEGY 10 MG/40 MG TABLETTEN [Suspect]
     Active Substance: EZETIMIBE\SIMVASTATIN
     Indication: HYPERCHOLESTEROLAEMIA
     Dosage: STRENGTH 10MG/40 MG , QD
     Route: 048
     Dates: start: 2006, end: 2013

REACTIONS (1)
  - Corneal dystrophy [Unknown]

NARRATIVE: CASE EVENT DATE: 2012
